FAERS Safety Report 7918982-X (Version None)
Quarter: 2011Q4

REPORT INFORMATION
  Report Type: 
  Country: None (occurrence: None)
  Receive Date: 20111116
  Receipt Date: 20111107
  Transmission Date: 20120403
  Serious: Yes (Other)
  Sender: FDA-Public Use
  Company Number: GB-ASTRAZENECA-2011SE67043

PATIENT
  Age: 70 Year
  Sex: Female

DRUGS (9)
  1. LISINOPRIL [Suspect]
     Indication: HYPERTENSION
     Route: 048
  2. LOSARTAN [Suspect]
     Route: 065
  3. LOSARTAN [Suspect]
     Route: 065
  4. ANTIBIOTICS [Concomitant]
  5. LOSARTAN [Suspect]
     Indication: HYPERTENSION
     Route: 065
  6. MEPERIDINE HCL [Concomitant]
  7. SULPHADIMIDINE [Concomitant]
  8. LOSARTAN [Suspect]
     Route: 065
  9. VERAPAMIL [Suspect]
     Indication: ATRIAL FIBRILLATION
     Route: 065

REACTIONS (15)
  - MUSCLE SPASMS [None]
  - ARTHRALGIA [None]
  - PHARYNGEAL OEDEMA [None]
  - OROPHARYNGEAL PAIN [None]
  - DECREASED APPETITE [None]
  - DRY EYE [None]
  - DIARRHOEA [None]
  - SLEEP DISORDER [None]
  - DRY MOUTH [None]
  - RASH ERYTHEMATOUS [None]
  - URINARY INCONTINENCE [None]
  - FIBROMYALGIA [None]
  - MUSCULOSKELETAL PAIN [None]
  - COUGH [None]
  - ABDOMINAL PAIN [None]
